FAERS Safety Report 6373375-4 (Version None)
Quarter: 2009Q3

REPORT INFORMATION
  Report Type: 
  Country: None (occurrence: None)
  Receive Date: 20090924
  Receipt Date: 20090410
  Transmission Date: 20100115
  Serious: Yes (Other)
  Sender: FDA-Public Use
  Company Number: US-ASTRAZENECA-2009UW09127

PATIENT
  Age: 47 Year
  Sex: Female
  Weight: 90.7 kg

DRUGS (10)
  1. SEROQUEL [Suspect]
     Indication: BIPOLAR DISORDER
     Route: 048
  2. SEROQUEL [Suspect]
     Dosage: DOSE INCREASED IN MARCH 2009 WHEN PATIENT EXPERIENCED SUICIDAL THOUGHTS
     Route: 048
     Dates: start: 20090301
  3. SEROQUEL [Suspect]
     Dosage: DOSE DECREASED WHEN PATIENT EXPERIENCED BEING TOO SLEEPY
     Route: 048
  4. XANAX [Suspect]
     Indication: BIPOLAR DISORDER
     Route: 048
  5. CHANTIX [Suspect]
     Indication: SMOKING CESSATION THERAPY
     Dosage: 0.5 MG QD FOR 3 DAYS, THEN 0.5 MG BID FOR 4 DAYS, THEN 1.0 MG BID
     Route: 048
     Dates: start: 20090320
  6. LAMICTAL [Suspect]
     Indication: BIPOLAR DISORDER
     Route: 048
  7. PERCOCET [Concomitant]
  8. LEVOTHYROXINE SODIUM [Concomitant]
  9. LISINOPRIL [Concomitant]
  10. NIACIN [Concomitant]

REACTIONS (3)
  - AGITATION [None]
  - SOMNOLENCE [None]
  - SUICIDAL IDEATION [None]
